FAERS Safety Report 7280040-8 (Version None)
Quarter: 2011Q1

REPORT INFORMATION
  Report Type: 
  Country: None (occurrence: None)
  Receive Date: 20110208
  Receipt Date: 20110202
  Transmission Date: 20110831
  Serious: Yes (Other)
  Sender: FDA-Public Use
  Company Number: US-PFIZER INC-2011024482

PATIENT
  Sex: Female
  Weight: 66 kg

DRUGS (8)
  1. PROZAC [Concomitant]
     Dosage: UNK
  2. WELLBUTRIN [Concomitant]
     Indication: DEPRESSION
     Dosage: UNK
  3. SYNTHROID [Concomitant]
     Indication: HYPOTHYROIDISM
     Dosage: UNK
  4. OGEN [Suspect]
     Indication: OESTROGEN REPLACEMENT THERAPY
     Dosage: 1.25 MG, DAILY
     Route: 048
     Dates: start: 19760101, end: 20020101
  5. VYTORIN [Concomitant]
     Dosage: UNK
  6. EZETIMIBE [Concomitant]
     Dosage: UNK
  7. BENAZEPRIL [Concomitant]
     Dosage: UNK
  8. ATIVAN [Concomitant]
     Indication: ANXIETY
     Dosage: UNK

REACTIONS (2)
  - HYPERTONIC BLADDER [None]
  - BREAST CANCER [None]
